FAERS Safety Report 24253323 (Version 1)
Quarter: 2024Q3

REPORT INFORMATION
  Report Type: Spontaneous
  Country: FR (occurrence: FR)
  Receive Date: 20240827
  Receipt Date: 20240827
  Transmission Date: 20241016
  Serious: Yes (Life-Threatening, Other)
  Sender: RANBAXY
  Company Number: FR-SUN PHARMACEUTICAL INDUSTRIES LTD-2024RR-464143

PATIENT
  Age: 27 Day
  Sex: Male

DRUGS (1)
  1. BACLOFEN [Suspect]
     Active Substance: BACLOFEN
     Indication: Wrong patient received product
     Dosage: UNK
     Route: 065
     Dates: end: 202403

REACTIONS (5)
  - Bradypnoea [Recovered/Resolved]
  - Coma [Recovered/Resolved]
  - Wrong patient received product [Recovered/Resolved]
  - Miosis [Recovered/Resolved]
  - Accidental overdose [Recovered/Resolved]

NARRATIVE: CASE EVENT DATE: 20240312
